FAERS Safety Report 18463127 (Version 1)
Quarter: 2020Q4

REPORT INFORMATION
  Report Type: Spontaneous
  Country: CN (occurrence: CN)
  Receive Date: 20201104
  Receipt Date: 20201104
  Transmission Date: 20210114
  Serious: Yes (Hospitalization, Other)
  Sender: FDA-Public Use
  Company Number: CN-PFIZER INC-2020423823

PATIENT
  Age: 26 Year
  Sex: Female
  Weight: 67 kg

DRUGS (3)
  1. SODIUM CHLORIDE. [Concomitant]
     Active Substance: SODIUM CHLORIDE
     Indication: VEHICLE SOLUTION USE
     Dosage: 500 ML, 2X/DAY
     Route: 041
     Dates: start: 20201017, end: 20201021
  2. CYTOSAR [Suspect]
     Active Substance: CYTARABINE
     Indication: NEOPLASM
     Dosage: 5000 MG, 2X/DAY
     Route: 041
     Dates: start: 20201017, end: 20201021
  3. CYTOSAR [Suspect]
     Active Substance: CYTARABINE
     Dosage: 190 MG, 2X/DAY
     Route: 041
     Dates: start: 20201017, end: 20201021

REACTIONS (6)
  - Pruritus [Recovering/Resolving]
  - Rash maculo-papular [Recovering/Resolving]
  - Rash [Recovering/Resolving]
  - Pyrexia [Recovering/Resolving]
  - Folliculitis [Recovering/Resolving]
  - Rash pustular [Recovering/Resolving]

NARRATIVE: CASE EVENT DATE: 20201018
